FAERS Safety Report 25472533 (Version 1)
Quarter: 2025Q2

REPORT INFORMATION
  Report Type: Spontaneous
  Country: HR (occurrence: HR)
  Receive Date: 20250624
  Receipt Date: 20250624
  Transmission Date: 20250716
  Serious: Yes (Other)
  Sender: SANOFI AVENTIS
  Company Number: None

PATIENT
  Age: 23 Year
  Sex: Male

DRUGS (3)
  1. AMISULPRIDE [Suspect]
     Active Substance: AMISULPRIDE
     Dosage: 800 MG, QD
     Route: 048
     Dates: start: 20250506, end: 20250506
  2. ZOLPIDEM TARTRATE [Suspect]
     Active Substance: ZOLPIDEM TARTRATE
     Dosage: 1 DF = 1 TABLET
     Route: 048
     Dates: start: 20250506, end: 20250506
  3. PROMAZINE [Suspect]
     Active Substance: PROMAZINE
     Dosage: 1 DF = 1 TABLET
     Route: 048
     Dates: start: 20250506, end: 20250506

REACTIONS (4)
  - Suicide attempt [Unknown]
  - Sluggishness [Unknown]
  - Somnolence [Unknown]
  - Intentional overdose [Unknown]

NARRATIVE: CASE EVENT DATE: 20250506
